FAERS Safety Report 11318966 (Version 1)
Quarter: 2015Q3

REPORT INFORMATION
  Report Type: Spontaneous
  Country: US (occurrence: None)
  Receive Date: 20150727
  Receipt Date: 20150727
  Transmission Date: 20151125
  Serious: Yes (Disabling)
  Sender: FDA-Public Use
  Company Number: None

PATIENT
  Age: 34 Year
  Sex: Female
  Weight: 79.38 kg

DRUGS (1)
  1. PARAGARD T 380A [Suspect]
     Active Substance: COPPER
     Indication: CONTRACEPTION
     Dosage: IUD, GOOD FOR 10 YRS, VAGINAL
     Route: 067
     Dates: start: 20150721

REACTIONS (9)
  - Thyroid hormones increased [None]
  - Asthenia [None]
  - Abdominal distension [None]
  - Dizziness [None]
  - Feeling abnormal [None]
  - Anxiety [None]
  - Anaemia [None]
  - Fatigue [None]
  - Quality of life decreased [None]

NARRATIVE: CASE EVENT DATE: 20150721
